FAERS Safety Report 10584704 (Version 1)
Quarter: 2014Q4

REPORT INFORMATION
  Report Type: Report from Study
  Country: DE (occurrence: DE)
  Receive Date: 20141114
  Receipt Date: 20141114
  Transmission Date: 20150529
  Serious: Yes (Hospitalization)
  Sender: FDA-Public Use
  Company Number: DE-SA-2014SA154025

PATIENT
  Age: 53 Year
  Sex: Male

DRUGS (8)
  1. MICARDIS [Concomitant]
     Active Substance: TELMISARTAN
  2. FOLINIC ACID [Suspect]
     Active Substance: LEUCOVORIN
     Indication: GASTROINTESTINAL NEOPLASM
     Route: 042
     Dates: start: 20130208, end: 20130208
  3. OXALIPLATIN. [Suspect]
     Active Substance: OXALIPLATIN
     Indication: GASTROINTESTINAL NEOPLASM
     Route: 042
     Dates: start: 20130208, end: 20130208
  4. DIGIMERCK [Concomitant]
     Active Substance: DIGITOXIN
  5. DOCETAXEL. [Suspect]
     Active Substance: DOCETAXEL
     Indication: GASTROINTESTINAL NEOPLASM
     Route: 042
     Dates: start: 20130208, end: 20130208
  6. FLUOROURACIL. [Suspect]
     Active Substance: FLUOROURACIL
     Indication: GASTROINTESTINAL NEOPLASM
     Route: 042
     Dates: start: 20130208, end: 20130208
  7. BISOPROLOL [Concomitant]
     Active Substance: BISOPROLOL
  8. CLEXANE [Concomitant]
     Active Substance: ENOXAPARIN SODIUM

REACTIONS (1)
  - Failure to anastomose [Recovered/Resolved]

NARRATIVE: CASE EVENT DATE: 20130422
